FAERS Safety Report 20318340 (Version 2)
Quarter: 2022Q1

REPORT INFORMATION
  Report Type: Spontaneous
  Country: IN (occurrence: IN)
  Receive Date: 20220110
  Receipt Date: 20220322
  Transmission Date: 20220423
  Serious: Yes (Life-Threatening, Hospitalization, Other)
  Sender: FDA-Public Use
  Company Number: IN-LUPIN LIMITED-2021-26544

PATIENT
  Age: 74 Year
  Sex: Male

DRUGS (2)
  1. ATORVASTATIN CALCIUM [Suspect]
     Active Substance: ATORVASTATIN CALCIUM
     Indication: Coronary artery disease
     Dosage: 80 MILLIGRAM  (INITIAL DOSE)
     Route: 065
  2. ATORVASTATIN CALCIUM [Suspect]
     Active Substance: ATORVASTATIN CALCIUM
     Dosage: 40 MILLIGRAM
     Route: 065

REACTIONS (1)
  - Rhabdomyolysis [Recovering/Resolving]
